FAERS Safety Report 13558224 (Version 1)
Quarter: 2017Q2

REPORT INFORMATION
  Report Type: Spontaneous
  Country: US (occurrence: US)
  Receive Date: 20170518
  Receipt Date: 20170518
  Transmission Date: 20170830
  Serious: No
  Sender: FDA-Public Use
  Company Number: US-PFIZER INC-2017219407

PATIENT
  Age: 65 Year
  Sex: Female

DRUGS (1)
  1. XELJANZ [Suspect]
     Active Substance: TOFACITINIB CITRATE
     Dosage: 5 MG, UNK

REACTIONS (9)
  - Joint stiffness [Unknown]
  - Dyspnoea [Unknown]
  - Blood pressure increased [Unknown]
  - Myalgia [Unknown]
  - Back pain [Unknown]
  - Fatigue [Unknown]
  - Wheezing [Unknown]
  - Arthralgia [Unknown]
  - Neck pain [Unknown]
